FAERS Safety Report 9225465 (Version 1)
Quarter: 2013Q2

REPORT INFORMATION
  Report Type: Spontaneous
  Country: JP (occurrence: JP)
  Receive Date: 20130411
  Receipt Date: 20130411
  Transmission Date: 20140414
  Serious: Yes (Other)
  Sender: FDA-Public Use
  Company Number: JP-009507513-1302JPN008895

PATIENT
  Age: 60 Year
  Sex: Female

DRUGS (5)
  1. FOSAPREPITANT DIMEGLUMINE [Suspect]
     Indication: PROPHYLAXIS OF NAUSEA AND VOMITING
     Dosage: 150 MG DAILY, DRIP
     Route: 041
     Dates: start: 20120928, end: 20120928
  2. FARMORUBICIN [Suspect]
     Indication: BREAST CANCER RECURRENT
     Dosage: 110 MG, DAILY
     Dates: start: 20120928, end: 20120928
  3. ENDOXAN [Suspect]
     Indication: BREAST CANCER RECURRENT
     Dosage: 660 MG DAILY
     Dates: start: 20120928, end: 20120928
  4. GRANISETRON [Concomitant]
     Dosage: UNK
     Dates: start: 2012, end: 2012
  5. DEXART [Concomitant]
     Dosage: UNK
     Dates: start: 2012, end: 2012

REACTIONS (3)
  - Agranulocytosis [Unknown]
  - Injection site cellulitis [Recovered/Resolved]
  - White blood cell count decreased [Unknown]
